FAERS Safety Report 21113808 (Version 4)
Quarter: 2022Q4

REPORT INFORMATION
  Report Type: Spontaneous
  Country: US (occurrence: US)
  Receive Date: 20220721
  Receipt Date: 20221109
  Transmission Date: 20230113
  Serious: Yes (Other)
  Sender: FDA-Public Use
  Company Number: US-VERTEX PHARMACEUTICALS-2022-008594

PATIENT
  Sex: Female
  Weight: 59 kg

DRUGS (5)
  1. TRIKAFTA [Suspect]
     Active Substance: ELEXACAFTOR\IVACAFTOR\TEZACAFTOR
     Indication: Cystic fibrosis
     Dosage: 2 TABS IN THE MORNING AND 1 TAB IN THE EVENING
     Route: 048
     Dates: start: 20191207, end: 2021
  2. TRIKAFTA [Suspect]
     Active Substance: ELEXACAFTOR\IVACAFTOR\TEZACAFTOR
     Dosage: 2 TABS IN THE MORNING AND 1 TAB IN THE EVENING
     Route: 048
     Dates: start: 202101
  3. TOBI [Suspect]
     Active Substance: TOBRAMYCIN
     Indication: Cataract
     Route: 048
  4. ALBUTEROL [Concomitant]
     Active Substance: ALBUTEROL
  5. PULMOZYME [Concomitant]
     Active Substance: DORNASE ALFA

REACTIONS (2)
  - Cataract [Unknown]
  - Sinusitis fungal [Not Recovered/Not Resolved]

NARRATIVE: CASE EVENT DATE: 20220101
